FAERS Safety Report 4983630-8 (Version None)
Quarter: 2006Q1

REPORT INFORMATION
  Report Type: 
  Country: None (occurrence: None)
  Receive Date: 20060227
  Receipt Date: 20050518
  Transmission Date: 20060701
  Serious: Yes (Disabling, Other)
  Sender: FDA-Public Use
  Company Number: WAES 0505USA02173

PATIENT
  Age: 68 Year
  Sex: Female
  Weight: 84.369 kg

DRUGS (5)
  1. ZOCOR [Suspect]
     Indication: HYPERLIPIDAEMIA
     Dosage: 40 MG DAILY PO
     Route: 048
  2. SYNTHROID [Concomitant]
  3. ASPIRIN [Concomitant]
  4. GLYBURIDE [Concomitant]
  5. VITAMIN E [Concomitant]

REACTIONS (1)
  - MYOPATHY [None]
